FAERS Safety Report 21188190 (Version 1)
Quarter: 2022Q3

REPORT INFORMATION
  Report Type: Other
  Country: FR (occurrence: FR)
  Receive Date: 20220809
  Receipt Date: 20220809
  Transmission Date: 20221026
  Serious: Yes (Other)
  Sender: FDA-Public Use
  Company Number: None

PATIENT

DRUGS (6)
  1. ESCITALOPRAM [Suspect]
     Active Substance: ESCITALOPRAM OXALATE
     Indication: Mental disorder
     Dosage: UNK
     Route: 048
  2. LOSARTAN [Suspect]
     Active Substance: LOSARTAN
     Indication: Hypertension
     Dosage: UNK
     Route: 048
  3. COMIRNATY [Suspect]
     Active Substance: TOZINAMERAN
     Indication: COVID-19 immunisation
     Dosage: 1 DOSAGE FORM, 1 TOTAL
     Route: 030
     Dates: start: 20220107, end: 20220107
  4. XANAX [Suspect]
     Active Substance: ALPRAZOLAM
     Indication: Mental disorder
     Dosage: UNK
     Route: 048
  5. LORAZEPAM [Suspect]
     Active Substance: LORAZEPAM
     Indication: Mental disorder
     Dosage: UNK
     Route: 048
  6. VAXZEVRIA [Concomitant]
     Active Substance: AZD-1222
     Indication: Product used for unknown indication
     Dosage: 1 DOSAGE FORM, 2 TOTAL
     Route: 030
     Dates: start: 20210416, end: 20210618

REACTIONS (2)
  - Transient ischaemic attack [Recovered/Resolved]
  - Atrial fibrillation [Not Recovered/Not Resolved]

NARRATIVE: CASE EVENT DATE: 20220114
